FAERS Safety Report 6099184-1 (Version None)
Quarter: 2009Q1

REPORT INFORMATION
  Report Type: 
  Country: None (occurrence: None)
  Receive Date: 20090302
  Receipt Date: 20090223
  Transmission Date: 20090719
  Serious: Yes (Other)
  Sender: FDA-Public Use
  Company Number: US-JNJCH-2009005094

PATIENT
  Age: 57 Year
  Sex: Male

DRUGS (2)
  1. ROLAIDS MULTI-SYMPTOM [Suspect]
     Indication: DYSPEPSIA
     Dosage: TEXT:TWO AT NIGHT AS NEEDED
     Route: 048
  2. INSULIN [Concomitant]
     Indication: DIABETES MELLITUS
     Dosage: TEXT:UNSPECIFIED
     Route: 065

REACTIONS (1)
  - BLOOD GLUCOSE INCREASED [None]
